FAERS Safety Report 7953901-1 (Version None)
Quarter: 2011Q4

REPORT INFORMATION
  Report Type: 
  Country: None (occurrence: None)
  Receive Date: 20111202
  Receipt Date: 20111128
  Transmission Date: 20120403
  Serious: Yes (Other)
  Sender: FDA-Public Use
  Company Number: US-BRISTOL-MYERS SQUIBB COMPANY-16253114

PATIENT
  Sex: Male

DRUGS (2)
  1. COCAINE [Interacting]
  2. COUMADIN [Suspect]

REACTIONS (3)
  - INTERNATIONAL NORMALISED RATIO ABNORMAL [None]
  - DRUG INTERACTION [None]
  - DRUG DEPENDENCE [None]
